FAERS Safety Report 7535213-3 (Version None)
Quarter: 2011Q2

REPORT INFORMATION
  Report Type: 
  Country: None (occurrence: None)
  Receive Date: 20110609
  Receipt Date: 20071119
  Transmission Date: 20111010
  Serious: Yes (Hospitalization, Other)
  Sender: FDA-Public Use
  Company Number: PHFR2007IE03439

PATIENT
  Sex: Female

DRUGS (6)
  1. TRENTAL [Concomitant]
     Route: 065
  2. NEXIUM [Concomitant]
     Route: 065
  3. CLOZAPINE [Suspect]
     Indication: SCHIZOPHRENIA
     Dosage: 700 MG DAILY
     Route: 048
     Dates: start: 19950619
  4. LIPITOR [Concomitant]
     Indication: BLOOD CHOLESTEROL INCREASED
     Route: 065
  5. ASPIRIN [Concomitant]
     Route: 065
  6. PLAVIX [Concomitant]
     Route: 065

REACTIONS (3)
  - BLOOD CHOLESTEROL INCREASED [None]
  - PERIPHERAL ISCHAEMIA [None]
  - AORTIC OCCLUSION [None]
